FAERS Safety Report 21453216 (Version 4)
Quarter: 2022Q4

REPORT INFORMATION
  Report Type: Report from Study
  Country: FR (occurrence: FR)
  Receive Date: 20221013
  Receipt Date: 20221128
  Transmission Date: 20230112
  Serious: Yes (Other)
  Sender: FDA-Public Use
  Company Number: FR-NOVARTISPH-NVSC2022FR205909

PATIENT
  Age: 7 Year
  Sex: Female
  Weight: 26 kg

DRUGS (6)
  1. ALPELISIB [Suspect]
     Active Substance: ALPELISIB
     Indication: PIK3CA related overgrowth spectrum
     Dosage: UNK
     Route: 048
     Dates: start: 20220414, end: 20220910
  2. ALPELISIB [Suspect]
     Active Substance: ALPELISIB
     Dosage: 50 MG, Q24H
     Route: 048
     Dates: start: 20220916
  3. ALPELISIB [Suspect]
     Active Substance: ALPELISIB
     Indication: PIK3CA related overgrowth spectrum
     Dosage: CODE NOT BROKEN
     Route: 048
     Dates: start: 20211228
  4. INVESTIGATIONAL PRODUCT [Suspect]
     Active Substance: INVESTIGATIONAL PRODUCT
     Indication: PIK3CA related overgrowth spectrum
     Dosage: CODE NOT BROKEN
     Route: 048
     Dates: start: 20211228
  5. PLACEBO [Suspect]
     Active Substance: UNSPECIFIED INGREDIENT
     Indication: PIK3CA related overgrowth spectrum
     Dosage: CODE NOT BROKEN
     Route: 048
     Dates: start: 20211228
  6. DOLIPRANE [Concomitant]
     Active Substance: ACETAMINOPHEN
     Indication: Pain in extremity
     Dosage: UNK
     Route: 065
     Dates: start: 20220910

REACTIONS (1)
  - Pyelonephritis [Recovered/Resolved]

NARRATIVE: CASE EVENT DATE: 20220910
